FAERS Safety Report 8405891-5 (Version None)
Quarter: 2012Q1

REPORT INFORMATION
  Report Type: 
  Country: None (occurrence: None)
  Receive Date: 20120323
  Receipt Date: 20110301
  Transmission Date: 20120608
  Serious: Yes (Hospitalization, Other)
  Sender: FDA-Public Use
  Company Number: 163-21880-10123104

PATIENT
  Age: 62 Year
  Sex: Female

DRUGS (4)
  1. REVLIMID [Suspect]
     Indication: MULTIPLE MYELOMA
     Dosage: 10 MG, 1 IN 1 D, PO, 5-10MG, PO, 15 MG, 1 IN 1 D, PO, 5 MG, 1 IN 1 D, PO,  5 MG, 1 IN 1 D, PO
     Route: 048
     Dates: start: 20101201
  2. REVLIMID [Suspect]
     Indication: MULTIPLE MYELOMA
     Dosage: 10 MG, 1 IN 1 D, PO, 5-10MG, PO, 15 MG, 1 IN 1 D, PO, 5 MG, 1 IN 1 D, PO,  5 MG, 1 IN 1 D, PO
     Route: 048
     Dates: start: 20100801
  3. REVLIMID [Suspect]
     Indication: MULTIPLE MYELOMA
     Dosage: 10 MG, 1 IN 1 D, PO, 5-10MG, PO, 15 MG, 1 IN 1 D, PO, 5 MG, 1 IN 1 D, PO,  5 MG, 1 IN 1 D, PO
     Route: 048
     Dates: start: 20100901
  4. REVLIMID [Suspect]
     Indication: MULTIPLE MYELOMA
     Dosage: 10 MG, 1 IN 1 D, PO, 5-10MG, PO, 15 MG, 1 IN 1 D, PO, 5 MG, 1 IN 1 D, PO,  5 MG, 1 IN 1 D, PO
     Route: 048
     Dates: start: 20101101

REACTIONS (5)
  - ISCHAEMIC STROKE [None]
  - DRUG INEFFECTIVE [None]
  - ASTHENIA [None]
  - FATIGUE [None]
  - DIARRHOEA [None]
